FAERS Safety Report 4942597-9 (Version None)
Quarter: 2006Q1

REPORT INFORMATION
  Report Type: 
  Country: None (occurrence: None)
  Receive Date: 20060310
  Receipt Date: 20060227
  Transmission Date: 20060701
  Serious: Yes (Hospitalization)
  Sender: FDA-Public Use
  Company Number: 220437

PATIENT
  Age: 54 Year
  Sex: Male
  Weight: 9.5 kg

DRUGS (6)
  1. RAPTIVA [Suspect]
     Indication: PSORIASIS
     Dosage: SEE IMAGE
     Route: 058
     Dates: start: 20041001, end: 20051001
  2. RAPTIVA [Suspect]
     Indication: PSORIASIS
     Dosage: SEE IMAGE
     Route: 058
     Dates: start: 20050901, end: 20051101
  3. METHOTREXATE [Concomitant]
  4. TOPROL-XL [Concomitant]
  5. LOTREL (AMLODIPINE BESYLATE, BENAZEPRIL HYDROCHLORIDE) [Concomitant]
  6. HYDROCHLOROTHIAZIDE [Concomitant]

REACTIONS (13)
  - ABNORMAL BEHAVIOUR [None]
  - CASTLEMAN'S DISEASE [None]
  - CONDITION AGGRAVATED [None]
  - DIFFICULTY IN WALKING [None]
  - HEADACHE [None]
  - HYPOAESTHESIA [None]
  - NODULE [None]
  - PARAESTHESIA [None]
  - PLATELET COUNT DECREASED [None]
  - PROTEIN S DEFICIENCY [None]
  - RASH PAPULAR [None]
  - TRANSIENT ISCHAEMIC ATTACK [None]
  - VISION BLURRED [None]
